FAERS Safety Report 8525530-2 (Version None)
Quarter: 2012Q3

REPORT INFORMATION
  Report Type: 
  Country: None (occurrence: None)
  Receive Date: 20120720
  Receipt Date: 20120711
  Transmission Date: 20120928
  Serious: No
  Sender: FDA-Public Use
  Company Number: US-B.I. PHARMACEUTICALS,INC./RIDGEFIELD-2012-BP-15465BP

PATIENT
  Sex: Female

DRUGS (6)
  1. SPIRIVA [Suspect]
     Dosage: 18 MCG
     Route: 048
     Dates: start: 20120711, end: 20120711
  2. PROZAC [Concomitant]
     Indication: DEPRESSION
  3. SPIRIVA [Suspect]
     Indication: CHRONIC OBSTRUCTIVE PULMONARY DISEASE
     Dosage: 18 MCG
     Route: 055
     Dates: start: 20110101
  4. SINGULAIR [Concomitant]
     Indication: ASTHMA
  5. SYNTHROID [Concomitant]
     Indication: HYPOTHYROIDISM
  6. PRAVASTATIN [Concomitant]
     Indication: BLOOD CHOLESTEROL

REACTIONS (1)
  - INCORRECT ROUTE OF DRUG ADMINISTRATION [None]
